FAERS Safety Report 10529761 (Version 1)
Quarter: 2014Q4

REPORT INFORMATION
  Report Type: Spontaneous
  Country: US (occurrence: None)
  Receive Date: 20141020
  Receipt Date: 20141020
  Transmission Date: 20150528
  Serious: No
  Sender: FDA-Public Use
  Company Number: None

PATIENT
  Sex: Female
  Weight: 58.97 kg

DRUGS (10)
  1. PAXIL [Suspect]
     Active Substance: PAROXETINE HYDROCHLORIDE
     Indication: DIZZINESS
  2. PAXIL [Suspect]
     Active Substance: PAROXETINE HYDROCHLORIDE
     Indication: MALAISE
  3. WARFARIN [Concomitant]
     Active Substance: WARFARIN
  4. PRAMIPEXOLE [Suspect]
     Active Substance: PRAMIPEXOLE
  5. METROPROLOL [Concomitant]
     Active Substance: METOPROLOL
  6. PREMARIN [Concomitant]
     Active Substance: ESTROGENS, CONJUGATED
  7. DIOXIN [Concomitant]
  8. PRESERVISION VITAMINS [Concomitant]
  9. PRAMIPEXOLE [Suspect]
     Active Substance: PRAMIPEXOLE
     Indication: RESTLESS LEGS SYNDROME
  10. PEROXATINE [Concomitant]

REACTIONS (4)
  - Mental disorder [None]
  - Insomnia [None]
  - Restless legs syndrome [None]
  - Drug dependence [None]
